FAERS Safety Report 7991315-9 (Version None)
Quarter: 2011Q4

REPORT INFORMATION
  Report Type: 
  Country: None (occurrence: None)
  Receive Date: 20111219
  Receipt Date: 20111212
  Transmission Date: 20120403
  Serious: Yes (Other)
  Sender: FDA-Public Use
  Company Number: JP-PFIZER INC-2011296680

PATIENT
  Sex: Male

DRUGS (1)
  1. CELECOXIB [Suspect]
     Dosage: 200 MG, 2X/DAY
     Route: 048
     Dates: start: 20110801

REACTIONS (4)
  - PYREXIA [None]
  - ANALGESIC ASTHMA SYNDROME [None]
  - ARTHRALGIA [None]
  - PSORIASIS [None]
